FAERS Safety Report 5255325-7 (Version None)
Quarter: 2007Q1

REPORT INFORMATION
  Report Type: 
  Country: None (occurrence: None)
  Receive Date: 20070305
  Receipt Date: 20070221
  Transmission Date: 20070707
  Serious: Yes (Hospitalization)
  Sender: FDA-Public Use
  Company Number: CZ-GLAXOSMITHKLINE-B0458745A

PATIENT
  Age: 62 Year
  Sex: Male
  Weight: 60.8 kg

DRUGS (5)
  1. GW679769 [Suspect]
     Indication: PROPHYLAXIS OF NAUSEA AND VOMITING
     Dates: start: 20070209
  2. ZOFRAN [Suspect]
     Indication: PROPHYLAXIS OF NAUSEA AND VOMITING
     Route: 042
     Dates: start: 20070209
  3. DEXAMETHASONE [Suspect]
     Indication: PROPHYLAXIS OF NAUSEA AND VOMITING
     Route: 048
     Dates: start: 20070209
  4. CISPLATIN [Suspect]
     Indication: NEOPLASM MALIGNANT
     Dosage: 125MG SINGLE DOSE
     Route: 042
     Dates: start: 20070209, end: 20070209
  5. FLUOROURACIL [Suspect]
     Indication: NEOPLASM MALIGNANT
     Dosage: 845MG SEE DOSAGE TEXT
     Route: 042

REACTIONS (3)
  - BLOOD CREATININE INCREASED [None]
  - BLOOD UREA INCREASED [None]
  - DEHYDRATION [None]
